FAERS Safety Report 9148832 (Version 1)
Quarter: 2013Q1

REPORT INFORMATION
  Report Type: Spontaneous
  Country: GB (occurrence: None)
  Receive Date: 20130220
  Receipt Date: 20130220
  Transmission Date: 20140127
  Serious: Yes (Death, Other)
  Sender: FDA-Public Use
  Company Number: 2013PI002279

PATIENT
  Sex: 0

DRUGS (1)
  1. FENTANYL [Suspect]

REACTIONS (5)
  - Drug level increased [None]
  - Pancreatitis chronic [None]
  - Hepatic steatosis [None]
  - Left ventricular failure [None]
  - Toxicity to various agents [None]
